FAERS Safety Report 13515272 (Version 2)
Quarter: 2017Q2

REPORT INFORMATION
  Report Type: Spontaneous
  Country: US (occurrence: US)
  Receive Date: 20170504
  Receipt Date: 20170628
  Transmission Date: 20170830
  Serious: Yes (Hospitalization, Other)
  Sender: FDA-Public Use
  Company Number: US-GLAXOSMITHKLINE-US2017GSK064842

PATIENT
  Sex: Female

DRUGS (2)
  1. LAMICTAL [Suspect]
     Active Substance: LAMOTRIGINE
     Indication: PRODUCT USED FOR UNKNOWN INDICATION
     Dosage: UNK
     Route: 065
  2. LAMICTAL [Suspect]
     Active Substance: LAMOTRIGINE
     Dosage: 100 MG, QD
     Route: 048

REACTIONS (23)
  - Skin lesion [Unknown]
  - Tongue ulceration [Unknown]
  - Myalgia [Unknown]
  - Dysphagia [Unknown]
  - Pain [Unknown]
  - Toxic epidermal necrolysis [Unknown]
  - Hypokalaemia [Unknown]
  - Vulvovaginal inflammation [Unknown]
  - Pyrexia [Unknown]
  - Joint swelling [Unknown]
  - Blister [Unknown]
  - Stevens-Johnson syndrome [Unknown]
  - Vision blurred [Unknown]
  - Stomatitis [Unknown]
  - Rash macular [Unknown]
  - Chills [Unknown]
  - Skin necrosis [Unknown]
  - Behcet^s syndrome [Unknown]
  - Skin exfoliation [Unknown]
  - Lip swelling [Unknown]
  - Rash [Unknown]
  - Myositis [Unknown]
  - Eye irritation [Unknown]
